FAERS Safety Report 9209141 (Version 1)
Quarter: 2013Q1

REPORT INFORMATION
  Report Type: Spontaneous
  Country: US (occurrence: None)
  Receive Date: 20120820
  Receipt Date: 20120820
  Transmission Date: 20140127
  Serious: No
  Sender: FDA-Public Use
  Company Number: 1000031036

PATIENT
  Age: 79 Year
  Sex: Female

DRUGS (4)
  1. VIIBRYD (VILAZODONE)(10 MILLIGRAM, TABLETS) [Suspect]
     Indication: DEPRESSION
     Route: 048
     Dates: start: 20120601, end: 20120603
  2. SYNTHROID (LEVOTHYROXINE SODIUM) (LEVOTHYROXINE SODIUM) [Concomitant]
  3. CELEBREX (CELECOXIB) (CELECOXIB) [Concomitant]
  4. VITAMIN B 12 (VITAMIN B12) (VITAMIN B12) [Concomitant]

REACTIONS (3)
  - Muscle spasms [None]
  - Palpitations [None]
  - Abdominal discomfort [None]
